FAERS Safety Report 7784593-2 (Version None)
Quarter: 2011Q3

REPORT INFORMATION
  Report Type: 
  Country: None (occurrence: None)
  Receive Date: 20110928
  Receipt Date: 20110921
  Transmission Date: 20111222
  Serious: Yes (Other)
  Sender: FDA-Public Use
  Company Number: US-ROCHE-786748

PATIENT
  Sex: Female
  Weight: 45.4 kg

DRUGS (1)
  1. ACCUTANE [Suspect]
     Indication: ACNE
     Route: 065
     Dates: start: 20020201, end: 20020901

REACTIONS (17)
  - DIARRHOEA [None]
  - INTESTINAL OBSTRUCTION [None]
  - IMPAIRED GASTRIC EMPTYING [None]
  - PANCREATITIS [None]
  - IRRITABLE BOWEL SYNDROME [None]
  - VOMITING [None]
  - CYSTITIS INTERSTITIAL [None]
  - INFLAMMATORY BOWEL DISEASE [None]
  - NAUSEA [None]
  - ABDOMINAL PAIN [None]
  - SPHINCTER OF ODDI DYSFUNCTION [None]
  - KIDNEY INFECTION [None]
  - DEPRESSION [None]
  - HEPATIC ENZYME INCREASED [None]
  - CONSTIPATION [None]
  - NEUROMYOPATHY [None]
  - TOOTH DISORDER [None]
